FAERS Safety Report 9713977 (Version 1)
Quarter: 2013Q4

REPORT INFORMATION
  Report Type: Spontaneous
  Country: US (occurrence: US)
  Receive Date: 20131126
  Receipt Date: 20131126
  Transmission Date: 20140711
  Serious: No
  Sender: FDA-Public Use
  Company Number: US-GILEAD-2008-0018395

PATIENT
  Sex: Female

DRUGS (17)
  1. LETAIRIS [Suspect]
     Indication: PULMONARY ARTERIAL HYPERTENSION
     Route: 048
     Dates: start: 20080622
  2. REVATIO [Concomitant]
     Route: 048
  3. DILTIAZEM [Concomitant]
     Route: 048
  4. LANOXIN [Concomitant]
     Route: 048
  5. LASIX [Concomitant]
     Route: 048
  6. COUMADIN [Concomitant]
     Route: 048
  7. AVELOX [Concomitant]
     Route: 048
  8. LIPITOR [Concomitant]
     Route: 048
  9. ASPIRIN [Concomitant]
     Route: 048
  10. COMBIVENT [Concomitant]
  11. GLUCOVANCE [Concomitant]
     Route: 048
  12. NEXIUM [Concomitant]
     Route: 048
  13. FERREX [Concomitant]
     Route: 048
  14. BENICAR [Concomitant]
     Route: 048
  15. KLOR-CON [Concomitant]
     Route: 048
  16. MAGNESIUM OXIDE [Concomitant]
     Route: 048
  17. CYANOCOBALAMIN [Concomitant]
     Route: 058

REACTIONS (1)
  - Mydriasis [None]
